FAERS Safety Report 5400311-7 (Version None)
Quarter: 2007Q3

REPORT INFORMATION
  Report Type: 
  Country: None (occurrence: None)
  Receive Date: 20070730
  Receipt Date: 20070719
  Transmission Date: 20080115
  Serious: Yes (Hospitalization, Disabling)
  Sender: FDA-Public Use
  Company Number: US-KINGPHARMUSA00001-K200700911

PATIENT

DRUGS (8)
  1. ALTACE [Suspect]
     Indication: CARDIAC FAILURE
     Dosage: 10 MG, QD
     Route: 048
     Dates: start: 20061215, end: 20070620
  2. ATACAND [Suspect]
     Indication: CARDIAC FAILURE
     Dosage: 4 MG, QD
     Dates: start: 20070418, end: 20070502
  3. ATACAND [Suspect]
     Dosage: 8 MG, QD
     Route: 048
     Dates: start: 20070503, end: 20070620
  4. SPIRONOLACTONE [Suspect]
     Indication: CARDIAC FAILURE
     Dosage: 50 MG, QD
     Route: 048
     Dates: start: 20070118, end: 20070620
  5. SPIRONOLACTONE [Suspect]
     Dosage: 12.5 MG, QD
     Route: 048
     Dates: start: 20070621
  6. BEHEPAN [Concomitant]
     Indication: VITAMIN B12 DEFICIENCY
     Route: 048
     Dates: start: 20061011
  7. ZOLPIDEM TARTRATE [Concomitant]
     Indication: INSOMNIA
     Route: 048
     Dates: start: 20061115
  8. IMODIUM       /00384302/ [Concomitant]
     Indication: DIARRHOEA
     Dosage: UNK, UNK
     Route: 048

REACTIONS (4)
  - ATRIAL FIBRILLATION [None]
  - BLOOD CREATININE INCREASED [None]
  - BLOOD POTASSIUM INCREASED [None]
  - SYNCOPE [None]
